FAERS Safety Report 9172255 (Version 1)
Quarter: 2013Q1

REPORT INFORMATION
  Report Type: Spontaneous
  Country: US (occurrence: US)
  Receive Date: 20130319
  Receipt Date: 20130319
  Transmission Date: 20140127
  Serious: No
  Sender: FDA-Public Use
  Company Number: US-ASTRAZENECA-2013SE11863

PATIENT
  Age: 77 Year
  Sex: Female

DRUGS (3)
  1. CRESTOR [Suspect]
     Indication: BLOOD LACTATE DEHYDROGENASE DECREASED
     Dosage: SPILTING TABLET IN TO HALF
     Route: 048
  2. CRESTOR [Suspect]
     Indication: BLOOD LACTATE DEHYDROGENASE DECREASED
     Route: 048
     Dates: start: 20121107
  3. BIOTIN [Suspect]
     Indication: HAIR DISORDER
     Route: 048
     Dates: end: 201302

REACTIONS (6)
  - Dermatitis contact [Not Recovered/Not Resolved]
  - Glossodynia [Not Recovered/Not Resolved]
  - Swollen tongue [Not Recovered/Not Resolved]
  - Lip swelling [Not Recovered/Not Resolved]
  - Lethargy [Not Recovered/Not Resolved]
  - Off label use [Unknown]
